FAERS Safety Report 21345537 (Version 8)
Quarter: 2023Q1

REPORT INFORMATION
  Report Type: Report from Study
  Country: IN (occurrence: IN)
  Receive Date: 20220916
  Receipt Date: 20230313
  Transmission Date: 20230418
  Serious: Yes (Hospitalization)
  Sender: FDA-Public Use
  Company Number: IN-JNJFOC-20220918278

PATIENT
  Age: 68 Year
  Sex: Female
  Weight: 87.5 kg

DRUGS (25)
  1. AMIVANTAMAB [Suspect]
     Active Substance: AMIVANTAMAB
     Indication: Non-small cell lung cancer metastatic
     Dosage: CYCLE 1, DAY 1
     Route: 042
     Dates: start: 20220404, end: 20220404
  2. AMIVANTAMAB [Suspect]
     Active Substance: AMIVANTAMAB
     Dosage: CYCLE 1 DAY 2
     Route: 042
     Dates: start: 20220405, end: 20220407
  3. AMIVANTAMAB [Suspect]
     Active Substance: AMIVANTAMAB
     Dosage: CYCLE 2
     Route: 042
     Dates: start: 20220503, end: 20220525
  4. AMIVANTAMAB [Suspect]
     Active Substance: AMIVANTAMAB
     Dosage: CYCLE 3
     Route: 042
     Dates: start: 20220526, end: 20220629
  5. AMIVANTAMAB [Suspect]
     Active Substance: AMIVANTAMAB
     Dosage: CYCLE 4
     Route: 042
     Dates: start: 20220630, end: 20220719
  6. AMIVANTAMAB [Suspect]
     Active Substance: AMIVANTAMAB
     Dosage: CYCLE 5
     Route: 042
     Dates: start: 20220720, end: 20220809
  7. AMIVANTAMAB [Suspect]
     Active Substance: AMIVANTAMAB
     Dosage: CYCLE 6; STOP DATE REPORTED AS ^02-AUG-2022^
     Route: 042
     Dates: start: 20220810
  8. AMIVANTAMAB [Suspect]
     Active Substance: AMIVANTAMAB
     Dosage: CYCLE 7
     Route: 042
     Dates: start: 20220903
  9. AMIVANTAMAB [Suspect]
     Active Substance: AMIVANTAMAB
     Dosage: CYCLE 8; ALSO REPORTED AS 1750 MG
     Route: 042
     Dates: start: 20220924, end: 20221013
  10. CARBOPLATIN [Concomitant]
     Active Substance: CARBOPLATIN
     Indication: Non-small cell lung cancer metastatic
     Dosage: ALSO REPORTED AS 600 MG, (END DATE ALSO REPORTED AS 24-MAY-2022)
     Route: 042
     Dates: start: 20220404, end: 20220526
  11. PEMETREXED [Concomitant]
     Active Substance: PEMETREXED
     Indication: Non-small cell lung cancer metastatic
     Dosage: ALSO REPORTED AS 900 MG
     Route: 042
     Dates: start: 20220404, end: 20220924
  12. RECLIDE [Concomitant]
     Indication: Type 2 diabetes mellitus
     Dosage: FREQUENCY ALSO REPORTED AS OD
     Route: 048
     Dates: start: 20220411
  13. ATORVASTATIN CALCIUM [Concomitant]
     Active Substance: ATORVASTATIN CALCIUM
     Indication: Prophylaxis
     Dosage: FREQUENCY ALSO REPORTED AS OD
     Route: 048
     Dates: start: 20220411, end: 20220927
  14. ATORVASTATIN CALCIUM [Concomitant]
     Active Substance: ATORVASTATIN CALCIUM
     Indication: Hypertension
  15. ENSURE [Concomitant]
     Active Substance: AMINO ACIDS\DEXTROSE\ELECTROLYTES NOS\SOYBEAN OIL\VITAMINS
     Indication: Diabetes mellitus
     Route: 048
     Dates: start: 20220701
  16. ENSURE [Concomitant]
     Active Substance: AMINO ACIDS\DEXTROSE\ELECTROLYTES NOS\SOYBEAN OIL\VITAMINS
     Indication: Hypoalbuminaemia
  17. FUROSEMIDE [Concomitant]
     Active Substance: FUROSEMIDE
     Indication: Oedema peripheral
     Route: 048
     Dates: start: 20220720, end: 20221020
  18. FUROSEMIDE [Concomitant]
     Active Substance: FUROSEMIDE
     Route: 048
     Dates: start: 20221104, end: 20230218
  19. LOOZ [Concomitant]
     Indication: Constipation
     Route: 048
     Dates: start: 20220720
  20. LOOZ [Concomitant]
     Route: 048
     Dates: start: 20220720
  21. IVABID [Concomitant]
     Indication: Sinus tachycardia
     Dosage: ALSO REPORTED AS 5 MG AND 1/2 BD
     Route: 048
     Dates: start: 20220903
  22. FOLVITE [Concomitant]
     Active Substance: FOLIC ACID
     Indication: Product used for unknown indication
     Route: 048
     Dates: start: 20220401
  23. FUROSEMIDE\SPIRONOLACTONE [Concomitant]
     Active Substance: FUROSEMIDE\SPIRONOLACTONE
     Indication: Oedema peripheral
     Route: 048
     Dates: start: 20220720, end: 20221020
  24. FUROSEMIDE\SPIRONOLACTONE [Concomitant]
     Active Substance: FUROSEMIDE\SPIRONOLACTONE
     Route: 065
     Dates: start: 20221104
  25. FILGRASTIM [Concomitant]
     Active Substance: FILGRASTIM
     Indication: Chemotherapy
     Dates: start: 20220905

REACTIONS (2)
  - Gastroenteritis [Recovered/Resolved]
  - Deep vein thrombosis [Recovering/Resolving]

NARRATIVE: CASE EVENT DATE: 20220906
